FAERS Safety Report 8230325-3 (Version None)
Quarter: 2012Q1

REPORT INFORMATION
  Report Type: 
  Country: None (occurrence: None)
  Receive Date: 20120320
  Receipt Date: 20120305
  Transmission Date: 20120608
  Serious: Yes (Other)
  Sender: FDA-Public Use
  Company Number: JPI-P-020160

PATIENT
  Age: 3 Decade
  Sex: Female

DRUGS (3)
  1. BENZODIAZEPINE [Suspect]
     Indication: BELLIGERENCE
     Dosage: (UNKNOWN)
  2. XYREM [Suspect]
     Indication: PRODUCT USED FOR UNKNOWN INDICATION
     Dosage: (UNKNOWN), ORAL
     Route: 048
  3. ALCOHOL [Suspect]
     Indication: ALCOHOL USE

REACTIONS (1)
  - RESPIRATORY DISTRESS [None]
